FAERS Safety Report 11215473 (Version 1)
Quarter: 2015Q2

REPORT INFORMATION
  Report Type: Spontaneous
  Country: DE (occurrence: None)
  Receive Date: 20150623
  Receipt Date: 20150623
  Transmission Date: 20150821
  Serious: Yes (Hospitalization)
  Sender: FDA-Public Use
  Company Number: None

PATIENT
  Sex: Male
  Weight: 68 kg

DRUGS (6)
  1. HARVONI [Suspect]
     Active Substance: LEDIPASVIR\SOFOSBUVIR
     Indication: HEPATITIS C
     Route: 048
     Dates: start: 20141208, end: 20150302
  2. PANTOPRAZOLE [Concomitant]
     Active Substance: PANTOPRAZOLE SODIUM
  3. LACTULOSE. [Concomitant]
     Active Substance: LACTULOSE
  4. METFORMIN [Concomitant]
     Active Substance: METFORMIN HYDROCHLORIDE
  5. PROPANOL [Concomitant]
     Active Substance: PROPRANOLOL HYDROCHLORIDE
  6. CILIMEPITID [Concomitant]

REACTIONS (2)
  - Upper gastrointestinal haemorrhage [None]
  - Varices oesophageal [None]

NARRATIVE: CASE EVENT DATE: 20141228
